FAERS Safety Report 17080245 (Version 1)
Quarter: 2019Q4

REPORT INFORMATION
  Report Type: Spontaneous
  Country: NL (occurrence: NL)
  Receive Date: 20191127
  Receipt Date: 20191127
  Transmission Date: 20200122
  Serious: Yes (Life-Threatening, Hospitalization)
  Sender: FDA-Public Use
  Company Number: NL-TEVA-2019-NL-1141864

PATIENT
  Age: 72 Year
  Sex: Male
  Weight: 90 kg

DRUGS (4)
  1. PREDNISOLON CAPSULE, 30 MG (MILLIGRAM) [Suspect]
     Active Substance: PREDNISOLONE
     Indication: LEUKAEMIA
     Dosage: 1X PER DAY 1 CAPSULE, 30MG
     Dates: start: 20190801
  2. VITAMINE D [Concomitant]
     Active Substance: CHOLECALCIFEROL
  3. METOPROLOL. [Concomitant]
     Active Substance: METOPROLOL
  4. SIMVASTATINE [Concomitant]
     Active Substance: SIMVASTATIN

REACTIONS (1)
  - Mania [Unknown]

NARRATIVE: CASE EVENT DATE: 20190803
